FAERS Safety Report 24986814 (Version 1)
Quarter: 2025Q1

REPORT INFORMATION
  Report Type: Spontaneous
  Country: US (occurrence: US)
  Receive Date: 20250219
  Receipt Date: 20250219
  Transmission Date: 20250409
  Serious: Yes (Other)
  Sender: PARATEK PHARMACEUTICALS
  Company Number: US-PARATEK PHARMACEUTICALS, INC.-2025PTK00228

PATIENT
  Age: 87 Year
  Sex: Female

DRUGS (8)
  1. NUZYRA [Suspect]
     Active Substance: OMADACYCLINE
     Route: 048
  2. ^TELL SATAN^ [PRESUMED TELMISARTAN] [Concomitant]
  3. BYSTOLIC [Concomitant]
     Active Substance: NEBIVOLOL HYDROCHLORIDE
  4. CLOPIDOGREL [Concomitant]
     Active Substance: CLOPIDOGREL BISULFATE
  5. AMLODIPINE [Concomitant]
     Active Substance: AMLODIPINE BESYLATE
  6. TRAMADOL [Concomitant]
     Active Substance: TRAMADOL
  7. SPIRIVA [Concomitant]
     Active Substance: TIOTROPIUM BROMIDE MONOHYDRATE
  8. REPATHA [Concomitant]
     Active Substance: EVOLOCUMAB

REACTIONS (3)
  - Suicidal ideation [Recovered/Resolved]
  - Depression [Recovered/Resolved]
  - Off label use [Unknown]
